FAERS Safety Report 8311133-1 (Version None)
Quarter: 2012Q2

REPORT INFORMATION
  Report Type: 
  Country: None (occurrence: None)
  Receive Date: 20120425
  Receipt Date: 20120416
  Transmission Date: 20120825
  Serious: Yes (Other)
  Sender: FDA-Public Use
  Company Number: US-JNJFOC-20120407896

PATIENT
  Sex: Male
  Weight: 92.99 kg

DRUGS (9)
  1. ZYTIGA [Suspect]
     Indication: PROSTATE CANCER METASTATIC
     Route: 048
     Dates: start: 20110601
  2. CRESTOR [Concomitant]
     Indication: BLOOD CHOLESTEROL INCREASED
     Route: 048
  3. GLIMEPIRIDE [Concomitant]
     Indication: DIABETES MELLITUS
     Route: 048
  4. VICODIN [Concomitant]
     Indication: PAIN
     Route: 048
     Dates: start: 20110401
  5. QUINAPRIL [Concomitant]
     Indication: HYPERTENSION
     Route: 048
  6. ACARBOSE [Concomitant]
     Indication: DIABETES MELLITUS
     Route: 048
  7. LUPRON [Suspect]
     Indication: PROSTATE CANCER METASTATIC
     Route: 065
     Dates: start: 20111001
  8. ZOMETA [Concomitant]
     Indication: NEOPLASM MALIGNANT
     Route: 042
  9. METFORMIN HCL [Concomitant]
     Indication: DIABETES MELLITUS
     Route: 048

REACTIONS (2)
  - PROSTATIC SPECIFIC ANTIGEN INCREASED [None]
  - PAIN [None]
